FAERS Safety Report 8269735-7 (Version None)
Quarter: 2012Q2

REPORT INFORMATION
  Report Type: 
  Country: None (occurrence: None)
  Receive Date: 20120406
  Receipt Date: 20120323
  Transmission Date: 20120825
  Serious: Yes (Hospitalization, Other)
  Sender: FDA-Public Use
  Company Number: 2012P1009422

PATIENT
  Age: 75 Year
  Sex: Male
  Weight: 81.6475 kg

DRUGS (4)
  1. PHENYTOIN SODIUM [Suspect]
     Indication: EPILEPSY
     Dosage: 100 MG; TID; PO
     Route: 048
     Dates: start: 20111201, end: 20120301
  2. DILANTIN [Suspect]
     Indication: EPILEPSY
     Dates: start: 20120301
  3. DIOVAN [Concomitant]
  4. OMEPRAZOLE [Concomitant]

REACTIONS (9)
  - SINUSITIS [None]
  - RENAL CYST [None]
  - PYREXIA [None]
  - ANTICONVULSANT DRUG LEVEL DECREASED [None]
  - RENAL FAILURE [None]
  - PRODUCT SUBSTITUTION ISSUE [None]
  - DEHYDRATION [None]
  - CHILLS [None]
  - PAIN [None]
